FAERS Safety Report 25989766 (Version 1)
Quarter: 2025Q4

REPORT INFORMATION
  Report Type: Spontaneous
  Country: CN (occurrence: CN)
  Receive Date: 20251103
  Receipt Date: 20251103
  Transmission Date: 20260118
  Serious: Yes (Other)
  Sender: OTSUKA
  Company Number: CN-MMM-Otsuka-FJDGES46

PATIENT
  Age: 13 Year
  Sex: Female
  Weight: 56 kg

DRUGS (1)
  1. ABILIFY [Suspect]
     Active Substance: ARIPIPRAZOLE
     Indication: Impulse-control disorder
     Dosage: 5 MG, QD
     Dates: start: 20251020, end: 20251027

REACTIONS (1)
  - Illusion [Recovered/Resolved]

NARRATIVE: CASE EVENT DATE: 20251020
